FAERS Safety Report 8316701-9 (Version None)
Quarter: 2012Q2

REPORT INFORMATION
  Report Type: 
  Country: None (occurrence: None)
  Receive Date: 20120424
  Receipt Date: 20120424
  Transmission Date: 20120825
  Serious: Yes (Other)
  Sender: FDA-Public Use
  Company Number: None

PATIENT
  Age: 39 Year
  Sex: Male
  Weight: 153.8 kg

DRUGS (2)
  1. CHOLECALCIFEROL 5000 IU PURE ENCAPSULATIONS [Suspect]
     Indication: BACK PAIN
     Dosage: 1 PILL DAILY BY MOUTH
     Route: 048
     Dates: start: 20120314
  2. CHOLECALCIFEROL 5000 IU PURE ENCAPSULATIONS [Suspect]
     Indication: BACK PAIN
     Dosage: 1 PILL DAILY BY MOUTH
     Route: 048
     Dates: start: 20120409

REACTIONS (1)
  - NEPHROLITHIASIS [None]
